FAERS Safety Report 4386923-0 (Version None)
Quarter: 2004Q2

REPORT INFORMATION
  Report Type: 
  Country: None (occurrence: None)
  Receive Date: 20040629
  Receipt Date: 20040629
  Transmission Date: 20050107
  Serious: Yes (Other)
  Sender: FDA-Public Use
  Company Number: None

PATIENT
  Age: 58 Year
  Sex: Male

DRUGS (4)
  1. ROCEPHIN [Suspect]
     Indication: CELLULITIS
  2. MORPHINE [Concomitant]
  3. ZOCOR [Concomitant]
  4. TENORMIN [Concomitant]

REACTIONS (1)
  - RASH [None]
